FAERS Safety Report 7104876-9 (Version None)
Quarter: 2010Q4

REPORT INFORMATION
  Report Type: 
  Country: None (occurrence: None)
  Receive Date: 20101116
  Receipt Date: 20101109
  Transmission Date: 20110411
  Serious: Yes (Other)
  Sender: FDA-Public Use
  Company Number: US-AMGEN-USASP2010001826

PATIENT

DRUGS (3)
  1. NPLATE [Suspect]
     Indication: IDIOPATHIC THROMBOCYTOPENIC PURPURA
     Dosage: 117 A?G, UNK
     Dates: start: 20090720, end: 20100615
  2. CORTICOSTEROIDS [Concomitant]
     Dosage: UNK
  3. PREDNISONE [Concomitant]
     Dosage: 2 MG, QWK

REACTIONS (4)
  - BONE MARROW RETICULIN FIBROSIS [None]
  - BONE NEOPLASM [None]
  - THERAPEUTIC RESPONSE DECREASED [None]
  - THROMBOCYTOPENIA [None]
